FAERS Safety Report 7824672-4 (Version None)
Quarter: 2011Q4

REPORT INFORMATION
  Report Type: 
  Country: None (occurrence: None)
  Receive Date: 20111019
  Receipt Date: 20111006
  Transmission Date: 20120403
  Serious: Yes (Other)
  Sender: FDA-Public Use
  Company Number: PHHY2011JP53678

PATIENT
  Sex: Male

DRUGS (7)
  1. RISEDRONATE SODIUM [Concomitant]
     Route: 048
  2. FAMOTIDINE [Concomitant]
     Route: 048
  3. CARNACULIN [Concomitant]
     Route: 048
  4. NEORAL [Suspect]
     Indication: PEMPHIGUS
     Dosage: 150 MG, QD
     Route: 048
     Dates: start: 20110309
  5. PREDNISOLONE [Concomitant]
     Route: 048
  6. NEORAL [Suspect]
     Dosage: 200 MG, QD
     Route: 048
     Dates: start: 20110425
  7. SULFAMETHOXAZOLE [Suspect]
     Route: 048

REACTIONS (1)
  - HEPATIC FUNCTION ABNORMAL [None]
